FAERS Safety Report 9646163 (Version 3)
Quarter: 2013Q4

REPORT INFORMATION
  Report Type: Spontaneous
  Country: US (occurrence: US)
  Receive Date: 20131025
  Receipt Date: 20131119
  Transmission Date: 20140711
  Serious: Yes (Other)
  Sender: FDA-Public Use
  Company Number: US-ALLERGAN-1316322US

PATIENT
  Age: 64 Year
  Sex: Male

DRUGS (2)
  1. BOTOX [Suspect]
     Indication: SALIVARY HYPERSECRETION
     Dosage: 150 UNITS, SINGLE
     Route: 030
     Dates: start: 20130823, end: 20130823
  2. LEVODOPA [Concomitant]
     Indication: PARKINSON^S DISEASE

REACTIONS (4)
  - Ocular myasthenia [Not Recovered/Not Resolved]
  - Off label use [Unknown]
  - Eyelid ptosis [Not Recovered/Not Resolved]
  - Drug ineffective [Unknown]
